FAERS Safety Report 9732969 (Version 1)
Quarter: 2013Q4

REPORT INFORMATION
  Report Type: Spontaneous
  Country: US (occurrence: US)
  Receive Date: 20131204
  Receipt Date: 20131204
  Transmission Date: 20140711
  Serious: No
  Sender: FDA-Public Use
  Company Number: US-GILEAD-2009-0020879

PATIENT
  Age: 63 Year
  Sex: Female

DRUGS (14)
  1. LETAIRIS [Suspect]
     Indication: PULMONARY ARTERIAL HYPERTENSION
     Route: 048
     Dates: start: 20090312
  2. COUMADIN [Concomitant]
  3. ATENOLOL [Concomitant]
  4. HYDROCHLOROTHIAZIDE/TRIAM [Concomitant]
  5. SYNTRHOID [Concomitant]
  6. FLEXERIL [Concomitant]
  7. CYMBALTA [Concomitant]
  8. AMBIEN [Concomitant]
  9. XANAX [Concomitant]
  10. PERCOCET [Concomitant]
  11. FOLIC ACID [Concomitant]
  12. VITAMIN C [Concomitant]
  13. BABY ASPIRIN [Concomitant]
  14. CALCIUM +D [Concomitant]

REACTIONS (2)
  - Laryngitis [Not Recovered/Not Resolved]
  - Pharyngeal erythema [Not Recovered/Not Resolved]
